FAERS Safety Report 13623126 (Version 1)
Quarter: 2017Q2

REPORT INFORMATION
  Report Type: Spontaneous
  Country: US (occurrence: US)
  Receive Date: 20170608
  Receipt Date: 20170608
  Transmission Date: 20170830
  Serious: No
  Sender: FDA-Public Use
  Company Number: US-AMGEN-USASP2017085835

PATIENT
  Age: 45 Year
  Sex: Female

DRUGS (12)
  1. FUROSEMIDE. [Concomitant]
     Active Substance: FUROSEMIDE
  2. MONTELUKAST SODIUM. [Concomitant]
     Active Substance: MONTELUKAST SODIUM
  3. ENBREL [Suspect]
     Active Substance: ETANERCEPT
     Indication: PRODUCT USED FOR UNKNOWN INDICATION
     Dosage: 50 MG, QWK
     Route: 058
     Dates: start: 201202
  4. PREDNISONE. [Concomitant]
     Active Substance: PREDNISONE
  5. FLUTICASONE PROPIONATE. [Concomitant]
     Active Substance: FLUTICASONE PROPIONATE
  6. MELOXICAM. [Concomitant]
     Active Substance: MELOXICAM
  7. METHOTREXATE. [Concomitant]
     Active Substance: METHOTREXATE
     Dosage: 1 G, UNK
  8. AMLODIPINE BESILATE [Concomitant]
     Active Substance: AMLODIPINE BESYLATE
  9. VENTOLIN HFA [Concomitant]
     Active Substance: ALBUTEROL SULFATE
  10. SPIRONOLACTONE. [Concomitant]
     Active Substance: SPIRONOLACTONE
  11. EPINEPHRINE SOA [Concomitant]
     Dosage: 0.3 MG/0.3
  12. PATADAY [Concomitant]
     Active Substance: OLOPATADINE HYDROCHLORIDE

REACTIONS (1)
  - Hypersensitivity [Not Recovered/Not Resolved]
